FAERS Safety Report 4478964-X (Version None)
Quarter: 2004Q4

REPORT INFORMATION
  Report Type: 
  Country: None (occurrence: None)
  Receive Date: 20041015
  Receipt Date: 20041006
  Transmission Date: 20050328
  Serious: Yes (Hospitalization)
  Sender: FDA-Public Use
  Company Number: GBWYE097808OCT04

PATIENT
  Age: 56 Year
  Sex: Female

DRUGS (6)
  1. RAPAMUNE [Suspect]
     Indication: IMMUNOSUPPRESSANT DRUG THERAPY
     Dosage: SEE IMAGE
     Route: 048
     Dates: start: 20040901, end: 20040928
  2. RAPAMUNE [Suspect]
     Indication: IMMUNOSUPPRESSANT DRUG THERAPY
     Dosage: SEE IMAGE
     Route: 048
     Dates: start: 20040929
  3. RAMIPRIL [Concomitant]
  4. FUROSEMIDE [Concomitant]
  5. ATORVASTATIN (ATORVASTATIN) [Concomitant]
  6. NYSTATIN [Concomitant]

REACTIONS (6)
  - BLOOD PRESSURE DECREASED [None]
  - DEHYDRATION [None]
  - GOUT [None]
  - PYREXIA [None]
  - SYNCOPE [None]
  - UPPER RESPIRATORY TRACT INFECTION [None]
